FAERS Safety Report 7484628-0 (Version None)
Quarter: 2011Q2

REPORT INFORMATION
  Report Type: 
  Country: None (occurrence: None)
  Receive Date: 20110516
  Receipt Date: 20110516
  Transmission Date: 20111010
  Serious: Yes (Other)
  Sender: FDA-Public Use
  Company Number: None

PATIENT
  Age: 46 Year
  Sex: Female
  Weight: 127.0072 kg

DRUGS (1)
  1. VENLAFAXINE [Suspect]
     Dosage: 75 MG 1 QAM PO 047
     Route: 048
     Dates: start: 20100608, end: 20100804

REACTIONS (4)
  - PRODUCT SUBSTITUTION ISSUE [None]
  - DEPRESSION [None]
  - ANXIETY [None]
  - IRRITABILITY [None]
